FAERS Safety Report 8242716-5 (Version None)
Quarter: 2012Q1

REPORT INFORMATION
  Report Type: 
  Country: None (occurrence: None)
  Receive Date: 20120314
  Receipt Date: 20100126
  Transmission Date: 20120608
  Serious: No
  Sender: FDA-Public Use
  Company Number: PHEH2010US01829

PATIENT
  Sex: Male

DRUGS (1)
  1. FANAPT [Suspect]

REACTIONS (9)
  - PALPITATIONS [None]
  - SOMNOLENCE [None]
  - DIZZINESS [None]
  - DRY MOUTH [None]
  - FATIGUE [None]
  - NASAL CONGESTION [None]
  - HEART RATE INCREASED [None]
  - WEIGHT INCREASED [None]
  - SEXUAL DYSFUNCTION [None]
